FAERS Safety Report 5224189-X (Version None)
Quarter: 2007Q1

REPORT INFORMATION
  Report Type: 
  Country: None (occurrence: None)
  Receive Date: 20061201
  Receipt Date: 20060906
  Transmission Date: 20070707
  Serious: No
  Sender: FDA-Public Use
  Company Number: 2006PV020860

PATIENT
  Age: 65 Year
  Sex: Female
  Weight: 93.441 kg

DRUGS (3)
  1. BYETTA [Suspect]
     Indication: DIABETES MELLITUS NON-INSULIN-DEPENDENT
     Dosage: 5 MCG;BID;SC
     Route: 058
     Dates: start: 20060829
  2. GLUCOVANCE [Concomitant]
  3. ESTROGENS SOL/INJ [Concomitant]

REACTIONS (4)
  - ASTHENIA [None]
  - BLOOD GLUCOSE INCREASED [None]
  - NAUSEA [None]
  - WEIGHT DECREASED [None]
